FAERS Safety Report 12724831 (Version 2)
Quarter: 2016Q3

REPORT INFORMATION
  Report Type: Spontaneous
  Country: US (occurrence: US)
  Receive Date: 20160908
  Receipt Date: 20160912
  Transmission Date: 20161109
  Serious: Yes (Other)
  Sender: FDA-Public Use
  Company Number: US-GLAXOSMITHKLINE-US2016GSK130606

PATIENT
  Age: 46 Year
  Sex: Female

DRUGS (4)
  1. LAMICTAL XR [Suspect]
     Active Substance: LAMOTRIGINE
     Indication: SEIZURE
     Dosage: 200 MG, BID
     Dates: start: 2006, end: 20160801
  2. ADVIL [Concomitant]
     Active Substance: IBUPROFEN
  3. LAMOTRIGINE TABLET [Suspect]
     Active Substance: LAMOTRIGINE
     Indication: SEIZURE
     Dosage: UNK, U
     Dates: start: 20160802
  4. FISH OIL [Concomitant]
     Active Substance: FISH OIL

REACTIONS (6)
  - Limb injury [Not Recovered/Not Resolved]
  - Fall [Unknown]
  - Head injury [Recovered/Resolved]
  - Drug ineffective [Unknown]
  - Seizure [Unknown]
  - Neck injury [Recovered/Resolved]

NARRATIVE: CASE EVENT DATE: 201607
